FAERS Safety Report 14006854 (Version 3)
Quarter: 2017Q4

REPORT INFORMATION
  Report Type: Spontaneous
  Country: US (occurrence: US)
  Receive Date: 20170925
  Receipt Date: 20171121
  Transmission Date: 20180321
  Serious: No
  Sender: FDA-Public Use
  Company Number: US-PFIZER INC-2017410156

PATIENT
  Age: 79 Year
  Sex: Female
  Weight: 65.31 kg

DRUGS (1)
  1. XALKORI [Suspect]
     Active Substance: CRIZOTINIB
     Indication: LUNG CANCER METASTATIC
     Dosage: 200 MG, TWICE A DAY
     Route: 048
     Dates: start: 201709, end: 2017

REACTIONS (6)
  - Influenza [Recovering/Resolving]
  - Vomiting [Recovering/Resolving]
  - Flatulence [Unknown]
  - Diarrhoea [Recovering/Resolving]
  - Nausea [Unknown]
  - Pain [Recovering/Resolving]

NARRATIVE: CASE EVENT DATE: 2017
